FAERS Safety Report 5567835-3 (Version None)
Quarter: 2007Q4

REPORT INFORMATION
  Report Type: 
  Country: None (occurrence: None)
  Receive Date: 20071220
  Receipt Date: 20071210
  Transmission Date: 20080405
  Serious: Yes (Death, Hospitalization)
  Sender: FDA-Public Use
  Company Number: PHHO2007TW10826

PATIENT
  Age: 60 Year
  Sex: Male

DRUGS (9)
  1. NILOTINIB VS IMATINIB [Suspect]
     Indication: GASTROINTESTINAL STROMAL TUMOUR
     Dosage: 800MG DAILY
     Route: 048
     Dates: start: 20070611, end: 20070627
  2. NILOTINIB VS IMATINIB [Suspect]
     Dosage: NO TREATMENT
     Dates: start: 20070628, end: 20070705
  3. NILOTINIB VS IMATINIB [Suspect]
     Dosage: 800MG DAILY
     Route: 048
     Dates: start: 20070706
  4. ZOPICLONE [Concomitant]
     Indication: INSOMNIA
  5. FENTANYL [Concomitant]
     Indication: PAIN
  6. MORPHINE [Concomitant]
     Indication: PAIN
  7. LORAZEPAM [Concomitant]
     Indication: INSOMNIA
  8. RIVOTRIL [Concomitant]
     Indication: URINARY INCONTINENCE
  9. GABAPENTIN [Concomitant]
     Indication: URINARY INCONTINENCE

REACTIONS (23)
  - ABDOMINAL DISTENSION [None]
  - ABDOMINAL PAIN [None]
  - ACINETOBACTER BACTERAEMIA [None]
  - BLOOD PRESSURE DECREASED [None]
  - DECREASED APPETITE [None]
  - DIARRHOEA [None]
  - DRUG INEFFECTIVE [None]
  - DYSPNOEA [None]
  - FAECAL VOLUME DECREASED [None]
  - HEART RATE DECREASED [None]
  - ILEUS [None]
  - INTESTINAL OBSTRUCTION [None]
  - MALIGNANT NEOPLASM PROGRESSION [None]
  - NAUSEA [None]
  - PLEURAL EFFUSION [None]
  - PYREXIA [None]
  - RESPIRATORY FAILURE [None]
  - SEPSIS [None]
  - SEPTIC SHOCK [None]
  - STAPHYLOCOCCAL INFECTION [None]
  - URINARY TRACT INFECTION [None]
  - VOMITING [None]
  - WEIGHT DECREASED [None]
